FAERS Safety Report 10369191 (Version 1)
Quarter: 2014Q3

REPORT INFORMATION
  Report Type: Other
  Country: IR (occurrence: IR)
  Receive Date: 20140807
  Receipt Date: 20140807
  Transmission Date: 20150326
  Serious: Yes (Other)
  Sender: FDA-Public Use
  Company Number: IR-ENDO PHARMACEUTICALS INC-RISP20140013

PATIENT
  Age: 24 Year
  Sex: Female

DRUGS (8)
  1. RISPERIDONE TABLETS [Suspect]
     Active Substance: RISPERIDONE
     Indication: HALLUCINATION, AUDITORY
  2. BIPERIDEN [Concomitant]
     Active Substance: BIPERIDEN
     Indication: PSYCHOTIC DISORDER
     Route: 065
  3. BIPERIDEN [Concomitant]
     Active Substance: BIPERIDEN
     Indication: PERSECUTORY DELUSION
  4. RISPERIDONE TABLETS [Suspect]
     Active Substance: RISPERIDONE
     Indication: PSYCHOTIC DISORDER
     Route: 048
  5. BIPERIDEN [Concomitant]
     Active Substance: BIPERIDEN
     Indication: HALLUCINATION, AUDITORY
  6. RISPERIDONE TABLETS [Suspect]
     Active Substance: RISPERIDONE
     Indication: HALLUCINATION, VISUAL
  7. RISPERIDONE TABLETS [Suspect]
     Active Substance: RISPERIDONE
     Indication: PERSECUTORY DELUSION
  8. BIPERIDEN [Concomitant]
     Active Substance: BIPERIDEN
     Indication: HALLUCINATION, VISUAL

REACTIONS (1)
  - Deep vein thrombosis [Recovered/Resolved]

NARRATIVE: CASE EVENT DATE: 2012
